FAERS Safety Report 8962561 (Version 1)
Quarter: 2012Q4

REPORT INFORMATION
  Report Type: Spontaneous
  Country: DE (occurrence: None)
  Receive Date: 20121206
  Receipt Date: 20121206
  Transmission Date: 20130627
  Serious: Yes (Other)
  Sender: FDA-Public Use
  Company Number: GER/GER/12/0026787

PATIENT
  Age: 59 Year
  Sex: Female

DRUGS (6)
  1. RAMIPRIL (RAMIPRIL) [Suspect]
     Indication: DRUG USE FOR UNKNOWN INDICATION
     Route: 048
  2. MIRTAZAPINE (MIRTAZAPINE) [Suspect]
     Indication: DRUG USE FOR UNKNOWN INDICATION
     Route: 048
  3. OXCARBAZEPINE [Suspect]
     Indication: DRUG USE FOR UNKNOWN INDICATION
     Route: 048
     Dates: start: 20120526, end: 20120621
  4. HCT HEXAL [Suspect]
     Indication: DRUG USE FOR UNKNOWN INDICATION
     Route: 048
     Dates: end: 20120621
  5. CARVEDILOL [Concomitant]
  6. TEMGESIC (BUPRENORPHINE HYDROCHLORIDE) [Concomitant]

REACTIONS (2)
  - Inappropriate antidiuretic hormone secretion [None]
  - Vertigo [None]
